FAERS Safety Report 10412505 (Version 1)
Quarter: 2014Q3

REPORT INFORMATION
  Report Type: Spontaneous
  Country: US (occurrence: US)
  Receive Date: 20140827
  Receipt Date: 20140827
  Transmission Date: 20150326
  Serious: Yes (Death, Hospitalization)
  Sender: FDA-Public Use
  Company Number: PHHY2014US105793

PATIENT
  Age: 19 Year
  Sex: Male
  Weight: 72 kg

DRUGS (17)
  1. TIGECYCLINE [Suspect]
     Active Substance: TIGECYCLINE
     Indication: ENTEROCOCCAL INFECTION
     Dosage: UNK
  2. LINEZOLID. [Suspect]
     Active Substance: LINEZOLID
     Indication: ENTEROCOCCAL INFECTION
     Dosage: UNK
  3. AMPICILLIN [Suspect]
     Active Substance: AMPICILLIN
     Indication: ENTEROCOCCAL INFECTION
  4. FLUDARABINE [Concomitant]
     Active Substance: FLUDARABINE PHOSPHATE
  5. CUBICIN [Suspect]
     Active Substance: DAPTOMYCIN
     Indication: ENTEROCOCCAL INFECTION
     Dosage: 10 MG/KG, QD
  6. TIGECYCLINE [Suspect]
     Active Substance: TIGECYCLINE
     Indication: DEVICE RELATED INFECTION
     Dosage: UNK
  7. IDARUBICIN [Concomitant]
     Active Substance: IDARUBICIN
  8. GENTAMICIN [Suspect]
     Active Substance: GENTAMICIN
     Indication: ENTEROCOCCAL INFECTION
  9. LINEZOLID. [Suspect]
     Active Substance: LINEZOLID
     Indication: DEVICE RELATED INFECTION
     Dosage: UNK
  10. AMPICILLIN [Suspect]
     Active Substance: AMPICILLIN
     Indication: DEVICE RELATED INFECTION
  11. DALFOPRISTIN W/QUINUPRISTIN [Suspect]
     Active Substance: DALFOPRISTIN\QUINUPRISTIN
     Indication: DEVICE RELATED INFECTION
     Dosage: UNK
  12. DALFOPRISTIN W/QUINUPRISTIN [Suspect]
     Active Substance: DALFOPRISTIN\QUINUPRISTIN
     Indication: DEVICE RELATED INFECTION
     Dosage: UNK
  13. CUBICIN [Suspect]
     Active Substance: DAPTOMYCIN
     Indication: OFF LABEL USE
  14. GENTAMICIN [Suspect]
     Active Substance: GENTAMICIN
     Indication: DEVICE RELATED INFECTION
     Dosage: 3 MG/KG, QD
  15. CYTARABINE. [Concomitant]
     Active Substance: CYTARABINE
  16. CUBICIN [Suspect]
     Active Substance: DAPTOMYCIN
     Indication: DEVICE RELATED INFECTION
     Dosage: 8 MG/KG, QD
  17. LINEZOLID. [Suspect]
     Active Substance: LINEZOLID
     Dosage: UNK
     Route: 048

REACTIONS (5)
  - Candida infection [Fatal]
  - Treatment failure [Unknown]
  - Pneumonia fungal [Fatal]
  - Drug resistance [Unknown]
  - Enterococcal bacteraemia [Unknown]
